FAERS Safety Report 8346123 (Version 2)
Quarter: 2013Q4

REPORT INFORMATION
  Report Type: Report from Study
  Country: JP (occurrence: JP)
  Receive Date: 20120120
  Receipt Date: 20131226
  Transmission Date: 20140711
  Serious: Yes (Hospitalization, Other)
  Sender: FDA-Public Use
  Company Number: PHHY2012JP003168

PATIENT
  Age: 75 Year
  Sex: Female

DRUGS (5)
  1. AMN107 [Suspect]
     Indication: CHRONIC MYELOID LEUKAEMIA
     Dosage: 200 MG, DAILY
     Route: 048
     Dates: start: 20100311, end: 20100318
  2. AMN107 [Suspect]
     Dosage: 300 MG, BID
     Dates: start: 20100319
  3. NAUZELIN [Concomitant]
  4. LASIX [Concomitant]
     Dosage: 100 MG, UNK
     Route: 048
  5. HUMALOG [Concomitant]
     Indication: DIABETES MELLITUS

REACTIONS (4)
  - Angina pectoris [Recovered/Resolved]
  - Diabetes mellitus [Recovering/Resolving]
  - Glycosylated haemoglobin increased [Recovering/Resolving]
  - Blood urea increased [Not Recovered/Not Resolved]
